FAERS Safety Report 6786842-6 (Version None)
Quarter: 2010Q2

REPORT INFORMATION
  Report Type: 
  Country: None (occurrence: None)
  Receive Date: 20100623
  Receipt Date: 20100618
  Transmission Date: 20101027
  Serious: Yes (Congenital Anomaly)
  Sender: FDA-Public Use
  Company Number: DE-RB-011822-10

PATIENT

DRUGS (2)
  1. SUBUTEX [Suspect]
     Route: 064
     Dates: start: 20091130
  2. L-POLAMIDON [Suspect]
     Route: 064
     Dates: end: 20091129

REACTIONS (2)
  - CLEFT PALATE [None]
  - DRUG EXPOSURE DURING PREGNANCY [None]
